FAERS Safety Report 10067758 (Version 3)
Quarter: 2014Q2

REPORT INFORMATION
  Report Type: Report from Study
  Country: DE (occurrence: DE)
  Receive Date: 20140409
  Receipt Date: 20140522
  Transmission Date: 20141212
  Serious: Yes (Hospitalization)
  Sender: FDA-Public Use
  Company Number: DE-ROCHE-1288625

PATIENT
  Age: 48 Year
  Sex: Female
  Weight: 81 kg

DRUGS (6)
  1. RHUPH20/TRASTUZUMAB [Suspect]
     Indication: HER-2 POSITIVE BREAST CANCER
     Dosage: DATE OF LAST DOSE PRIOR TO SAE: 02/SEP/2013
     Route: 058
     Dates: start: 20120910, end: 20130902
  2. TAMOXIFEN [Concomitant]
     Route: 065
     Dates: start: 2012
  3. TAMOXIFEN [Concomitant]
     Route: 065
     Dates: start: 20131028
  4. BISOPROLOL [Concomitant]
     Route: 065
     Dates: start: 201202, end: 201402
  5. BISOPROLOL [Concomitant]
     Route: 065
     Dates: start: 201402
  6. BISOPROLOL [Concomitant]
     Route: 065
     Dates: start: 20131028

REACTIONS (2)
  - Renal cell carcinoma [Recovered/Resolved]
  - Ovarian cancer [Recovered/Resolved]
